FAERS Safety Report 20144650 (Version 1)
Quarter: 2021Q4

REPORT INFORMATION
  Report Type: Report from Study
  Country: US (occurrence: US)
  Receive Date: 20211203
  Receipt Date: 20211203
  Transmission Date: 20220303
  Serious: Yes (Death, Hospitalization, Other)
  Sender: FDA-Public Use
  Company Number: US-TEVA-2021-US-1983878

PATIENT
  Age: 72 Year
  Sex: Male

DRUGS (1)
  1. CLOZAPINE [Suspect]
     Active Substance: CLOZAPINE
     Dosage: 500 MILLIGRAM DAILY; 100MG TABLET EVERY MORNING; 200MG TABLET AT BEDTIME TO EQUAL A TOTAL DAILY DOSE
     Route: 065

REACTIONS (3)
  - Fall [Fatal]
  - Neutropenia [Fatal]
  - Neutrophil count abnormal [Unknown]

NARRATIVE: CASE EVENT DATE: 20210921
